FAERS Safety Report 10475793 (Version 1)
Quarter: 2014Q3

REPORT INFORMATION
  Report Type: Spontaneous
  Country: US (occurrence: US)
  Receive Date: 20140925
  Receipt Date: 20140925
  Transmission Date: 20150326
  Serious: No
  Sender: FDA-Public Use
  Company Number: US-GLAXOSMITHKLINE-A1055251A

PATIENT
  Sex: Female

DRUGS (1)
  1. CEFTIN [Suspect]
     Active Substance: CEFUROXIME AXETIL
     Indication: PYREXIA
     Route: 048

REACTIONS (5)
  - Feeling abnormal [Unknown]
  - Vomiting [Unknown]
  - Vomiting projectile [Unknown]
  - Crying [Unknown]
  - Condition aggravated [Unknown]
